FAERS Safety Report 6829884-4 (Version None)
Quarter: 2010Q3

REPORT INFORMATION
  Report Type: 
  Country: None (occurrence: None)
  Receive Date: 20100711
  Receipt Date: 20100426
  Transmission Date: 20110219
  Serious: No
  Sender: FDA-Public Use
  Company Number: US-ALLERGAN-0913717US

PATIENT
  Age: 42 Year
  Sex: Female

DRUGS (1)
  1. LATISSE [Suspect]
     Indication: GROWTH OF EYELASHES
     Dosage: 1 GTT, QHS

REACTIONS (3)
  - DRY EYE [None]
  - EYELID SENSORY DISORDER [None]
  - PARAESTHESIA [None]
